FAERS Safety Report 6594457-8 (Version None)
Quarter: 2010Q1

REPORT INFORMATION
  Report Type: 
  Country: None (occurrence: None)
  Receive Date: 20100222
  Receipt Date: 20100210
  Transmission Date: 20100710
  Serious: Yes (Hospitalization)
  Sender: FDA-Public Use
  Company Number: NL-PFIZER INC-2008060428

PATIENT
  Age: 72 Year
  Sex: Female
  Weight: 80 kg

DRUGS (7)
  1. SUNITINIB MALATE [Suspect]
     Indication: NON-SMALL CELL LUNG CANCER
     Dosage: 37.5 MG DAILY, CYCLIC
     Route: 048
     Dates: start: 20071205, end: 20080718
  2. *ERLOTINIB [Suspect]
     Indication: NON-SMALL CELL LUNG CANCER
     Dosage: 100 MG, CYCLIC EVERY DAY
     Route: 048
     Dates: start: 20071205, end: 20080718
  3. AMARYL [Concomitant]
     Dosage: 2 MG, UNK
     Route: 048
  4. TEMAZEPAM [Concomitant]
     Dosage: 10 MG, UNK
     Route: 048
  5. DICLOFENAC [Concomitant]
     Dosage: 75 MG, UNK
     Route: 048
  6. PANTOPRAZOLE SODIUM [Concomitant]
     Route: 048
     Dates: start: 20071221, end: 20080718
  7. PERINDOPRIL [Concomitant]
     Dosage: 4 MG, UNK

REACTIONS (1)
  - CEREBRAL ISCHAEMIA [None]
